FAERS Safety Report 5491029-3 (Version None)
Quarter: 2007Q4

REPORT INFORMATION
  Report Type: 
  Country: None (occurrence: None)
  Receive Date: 20071019
  Receipt Date: 20071011
  Transmission Date: 20080405
  Serious: Yes (Congenital Anomaly)
  Sender: FDA-Public Use
  Company Number: US-PFIZER INC-2007071179

PATIENT

DRUGS (7)
  1. VIRACEPT [Suspect]
     Indication: HIV INFECTION
     Route: 048
  2. VIDEX [Suspect]
  3. SUSTIVA [Suspect]
  4. EPIVIR [Suspect]
  5. NORVIR [Suspect]
  6. RETROVIR [Suspect]
  7. INDINIVIR SULFATE [Suspect]

REACTIONS (2)
  - DRUG EXPOSURE DURING PREGNANCY [None]
  - HYPOSPADIAS [None]
